FAERS Safety Report 6029481-7 (Version None)
Quarter: 2009Q1

REPORT INFORMATION
  Report Type: 
  Country: None (occurrence: None)
  Receive Date: 20090105
  Receipt Date: 20090105
  Transmission Date: 20090719
  Serious: No
  Sender: FDA-Public Use
  Company Number: None

PATIENT
  Age: 82 Year
  Sex: Male
  Weight: 73.0291 kg

DRUGS (1)
  1. LEVAQUIN [Suspect]
     Dosage: ONE DAILY ORAL
     Route: 048

REACTIONS (1)
  - DIZZINESS [None]
